FAERS Safety Report 24874194 (Version 1)
Quarter: 2025Q1

REPORT INFORMATION
  Report Type: Spontaneous
  Country: US (occurrence: None)
  Receive Date: 20250121
  Receipt Date: 20250121
  Transmission Date: 20250408
  Serious: Yes (Other)
  Sender: FDA-CTU
  Company Number: None

PATIENT
  Age: 64 Year

DRUGS (1)
  1. XEMBIFY [Suspect]
     Active Substance: HUMAN IMMUNOGLOBULIN G
     Route: 058

REACTIONS (9)
  - Infusion related reaction [None]
  - Dizziness [None]
  - Vomiting [None]
  - Swelling face [None]
  - Rash [None]
  - Diarrhoea [None]
  - Polycythaemia vera [None]
  - Lymphadenopathy [None]
  - Faeces discoloured [None]

NARRATIVE: CASE EVENT DATE: 20250109
